FAERS Safety Report 11642757 (Version 1)
Quarter: 2015Q4

REPORT INFORMATION
  Report Type: Spontaneous
  Country: US (occurrence: US)
  Receive Date: 20151020
  Receipt Date: 20151020
  Transmission Date: 20160304
  Serious: No
  Sender: FDA-Public Use
  Company Number: US-B.I. PHARMACEUTICALS,INC./RIDGEFIELD-2015-BI-55105BP

PATIENT
  Age: 62 Year
  Sex: Male
  Weight: 127 kg

DRUGS (1)
  1. GLYXAMBI [Suspect]
     Active Substance: EMPAGLIFLOZIN\LINAGLIPTIN
     Indication: DIABETES MELLITUS
     Dosage: DOSE PER APPLICATION AND DAILY DOSE: 10MG/5MG
     Route: 048
     Dates: start: 20151003

REACTIONS (1)
  - Dyspnoea [Recovered/Resolved]

NARRATIVE: CASE EVENT DATE: 201510
